FAERS Safety Report 5025498-X (Version None)
Quarter: 2006Q2

REPORT INFORMATION
  Report Type: 
  Country: None (occurrence: None)
  Receive Date: 20060608
  Receipt Date: 20060531
  Transmission Date: 20061013
  Serious: Yes (Other)
  Sender: FDA-Public Use
  Company Number: 200612124BCC

PATIENT
  Age: 74 Year
  Sex: Female
  Weight: 90.7194 kg

DRUGS (6)
  1. ASPIRIN [Suspect]
     Indication: PROPHYLAXIS
     Dosage: 81 MG, QD, ORAL; SEE IMAGE
     Route: 048
     Dates: start: 19860101
  2. ASPIRIN [Suspect]
     Indication: PROPHYLAXIS
     Dosage: 81 MG, QD, ORAL; SEE IMAGE
     Route: 048
     Dates: start: 20050101
  3. LEVOXYL [Concomitant]
  4. LISINOPRIL [Concomitant]
  5. TENORMIN [Concomitant]
  6. LIPITOR [Concomitant]

REACTIONS (1)
  - TRANSIENT ISCHAEMIC ATTACK [None]
